FAERS Safety Report 17037523 (Version 1)
Quarter: 2019Q4

REPORT INFORMATION
  Report Type: Spontaneous
  Country: US (occurrence: US)
  Receive Date: 20191115
  Receipt Date: 20191115
  Transmission Date: 20200122
  Serious: Yes (Other)
  Sender: FDA-Public Use
  Company Number: US-SHIRE-US201937921

PATIENT
  Age: 5 Year
  Sex: Male

DRUGS (1)
  1. VON WILLEBRAND FACTOR(RECOMBINANT) [Suspect]
     Active Substance: VON WILLEBRAND FACTOR (RECOMBINANT)
     Indication: SYNOVITIS
     Dosage: 45 INTERNATIONAL UNIT/KILOGRAM, 3X A WEEK , 45 UNIT/KG PER DOSE
     Route: 065

REACTIONS (1)
  - Factor VIII inhibition [Unknown]
